FAERS Safety Report 5325784-X (Version None)
Quarter: 2007Q2

REPORT INFORMATION
  Report Type: 
  Country: None (occurrence: None)
  Receive Date: 20070510
  Receipt Date: 20050919
  Transmission Date: 20071010
  Serious: Yes (Hospitalization)
  Sender: FDA-Public Use
  Company Number: 155778ISR

PATIENT
  Age: 83 Year
  Sex: Female

DRUGS (10)
  1. VINCRISTINE [Suspect]
     Indication: B-CELL LYMPHOMA
     Dosage: 1.8 MG, 1 IN 3 WK), INTRAVENOUS (NOT OTHERWISE SPECIFIED)
     Route: 042
     Dates: start: 20041112, end: 20050308
  2. DOXORUBICIN HYDROCHLORIDE [Suspect]
     Indication: B-CELL LYMPHOMA
     Dosage: (60 MG, 1 IN 3 WK), INTRAVENOUS (NOT OTHERWISE SPECIFIED)
     Route: 042
  3. PANTOPRAZOLE SODIUM [Suspect]
     Dosage: 20 MG, ORAL
     Route: 048
     Dates: end: 20050518
  4. CARBIMAZOLE [Suspect]
     Indication: THYROID DISORDER
     Dosage: 5 MG , ORAL
     Route: 048
     Dates: end: 20050527
  5. RITUXIMAB [Suspect]
     Indication: B-CELL LYMPHOMA
     Dosage: (525 MG, 1 IN 3 WK) INTRAVENOUS (NOT OTHERWISE SPECIFIED)
     Route: 042
     Dates: start: 20041112, end: 20050308
  6. CYCLOPHOSPHAMIDE [Suspect]
     Indication: B-CELL LYMPHOMA
     Dosage: 42.8571 MG (900 MG, 1 IN 3 WK), INTRAVENOUS  (NOT OTHERWISE SPECIFIED)
     Route: 042
     Dates: start: 20041112, end: 20050308
  7. CIPROFLOXACIN [Suspect]
     Indication: URINARY TRACT INFECTION
     Dosage: ORAL
     Route: 048
     Dates: start: 20050508, end: 20050513
  8. CALCIUM  CARBONATE [Concomitant]
  9. TORSEMIDE [Concomitant]
  10. METOPROLOL SUCCINATE [Concomitant]

REACTIONS (7)
  - COAGULATION TIME PROLONGED [None]
  - DISEASE RECURRENCE [None]
  - HEPATITIS B [None]
  - HEPATITIS CHRONIC ACTIVE [None]
  - HEPATITIS INFECTIOUS [None]
  - HEPATITIS TOXIC [None]
  - URINARY TRACT INFECTION [None]
